FAERS Safety Report 13634342 (Version 3)
Quarter: 2017Q4

REPORT INFORMATION
  Report Type: Spontaneous
  Country: US (occurrence: US)
  Receive Date: 20170609
  Receipt Date: 20171110
  Transmission Date: 20180320
  Serious: Yes (Other)
  Sender: FDA-Public Use
  Company Number: US-ASTRAZENECA-2017SE58710

PATIENT
  Age: 63 Year
  Sex: Female

DRUGS (7)
  1. WARFARIN [Concomitant]
     Active Substance: WARFARIN
     Dates: start: 2011
  2. NEXIUM [Suspect]
     Active Substance: ESOMEPRAZOLE MAGNESIUM
     Indication: GASTROOESOPHAGEAL REFLUX DISEASE
     Route: 048
     Dates: start: 2000
  3. NEXIUM [Suspect]
     Active Substance: ESOMEPRAZOLE MAGNESIUM
     Indication: GASTROOESOPHAGEAL REFLUX DISEASE
     Route: 048
     Dates: start: 2000
  4. DIGOXIN. [Concomitant]
     Active Substance: DIGOXIN
     Dates: start: 2012
  5. ACIPHEX [Concomitant]
     Active Substance: RABEPRAZOLE SODIUM
  6. PANTOPRAZOLE [Concomitant]
     Active Substance: PANTOPRAZOLE
     Dates: end: 2016
  7. METOPROLOL. [Concomitant]
     Active Substance: METOPROLOL
     Dates: start: 2011

REACTIONS (7)
  - Gait disturbance [Recovered/Resolved]
  - Gluten sensitivity [Unknown]
  - Pain [Recovered/Resolved]
  - Coeliac disease [Not Recovered/Not Resolved]
  - Reaction to excipient [Unknown]
  - Muscle disorder [Recovered/Resolved]
  - Fatigue [Recovered/Resolved]

NARRATIVE: CASE EVENT DATE: 2000
